FAERS Safety Report 25271087 (Version 1)
Quarter: 2025Q2

REPORT INFORMATION
  Report Type: Spontaneous
  Country: US (occurrence: US)
  Receive Date: 20250506
  Receipt Date: 20250506
  Transmission Date: 20250716
  Serious: No
  Sender: Haleon PLC
  Company Number: US-002147023-NVSC2023US133151

PATIENT
  Sex: Female

DRUGS (10)
  1. TERBINAFINE [Suspect]
     Active Substance: TERBINAFINE
     Indication: Generalised pustular psoriasis
     Route: 065
  2. PREDNISONE [Suspect]
     Active Substance: PREDNISONE
     Indication: Pustular psoriasis
     Route: 065
  3. ALCOHOL [Suspect]
     Active Substance: ALCOHOL
     Indication: Generalised pustular psoriasis
     Route: 065
  4. ACITRETIN [Suspect]
     Active Substance: ACITRETIN
     Indication: Generalised pustular psoriasis
     Route: 065
  5. COSENTYX [Suspect]
     Active Substance: SECUKINUMAB
     Indication: Generalised pustular psoriasis
     Route: 050
  6. LIDOCAINE [Suspect]
     Active Substance: LIDOCAINE
     Indication: Generalised pustular psoriasis
     Route: 065
  7. LIDOCAINE [Suspect]
     Active Substance: LIDOCAINE
     Route: 065
  8. AMOXICILLIN [Suspect]
     Active Substance: AMOXICILLIN
     Indication: Generalised pustular psoriasis
     Route: 065
  9. TRIAMCINOLONE [Suspect]
     Active Substance: TRIAMCINOLONE
     Indication: Generalised pustular psoriasis
     Route: 065
  10. METOPROLOL [Suspect]
     Active Substance: METOPROLOL
     Indication: Generalised pustular psoriasis
     Route: 065

REACTIONS (9)
  - Pustular psoriasis [Unknown]
  - Papule [Unknown]
  - Rash pruritic [Unknown]
  - Rash [Unknown]
  - Pyrexia [Unknown]
  - Drug ineffective [Unknown]
  - Product use in unapproved indication [Unknown]
  - Oropharyngeal pain [Unknown]
  - Dermatitis [Unknown]
